FAERS Safety Report 9859974 (Version 2)
Quarter: 2014Q1

REPORT INFORMATION
  Report Type: Spontaneous
  Country: US (occurrence: US)
  Receive Date: 20140131
  Receipt Date: 20140131
  Transmission Date: 20141002
  Serious: No
  Sender: FDA-Public Use
  Company Number: US-PFIZER INC-2014026089

PATIENT
  Age: 64 Year
  Sex: Female
  Weight: 64.9 kg

DRUGS (2)
  1. LEVOXYL [Suspect]
     Indication: THYROID DISORDER
     Dosage: 100 UG, DAILY
  2. LEVOXYL [Suspect]
     Dosage: 88 UG, DAILY
     Route: 048

REACTIONS (2)
  - Palpitations [Unknown]
  - Blood thyroid stimulating hormone decreased [Unknown]
